FAERS Safety Report 19172495 (Version 2)
Quarter: 2021Q2

REPORT INFORMATION
  Report Type: Spontaneous
  Country: US (occurrence: US)
  Receive Date: 20210423
  Receipt Date: 20210505
  Transmission Date: 20210717
  Serious: No
  Sender: FDA-Public Use
  Company Number: US-SA-2021SA130943

PATIENT
  Age: 64 Year
  Sex: Female

DRUGS (3)
  1. ALLEGRA ALLERGY [Suspect]
     Active Substance: FEXOFENADINE HYDROCHLORIDE
     Indication: SNEEZING
  2. ALLEGRA ALLERGY [Suspect]
     Active Substance: FEXOFENADINE HYDROCHLORIDE
     Indication: EYE PRURITUS
  3. ALLEGRA ALLERGY [Suspect]
     Active Substance: FEXOFENADINE HYDROCHLORIDE
     Indication: RHINORRHOEA
     Dosage: DRUG STRUCTURE DOSAGE : 180 MG. DRUG INTERVAL DOSAGE : ONCE A DAY

REACTIONS (3)
  - Product label issue [Unknown]
  - Drug ineffective [Unknown]
  - Product physical issue [Unknown]
